FAERS Safety Report 6146765-2 (Version None)
Quarter: 2009Q2

REPORT INFORMATION
  Report Type: 
  Country: None (occurrence: None)
  Receive Date: 20090403
  Receipt Date: 20090403
  Transmission Date: 20091009
  Serious: Yes (Hospitalization)
  Sender: FDA-Public Use
  Company Number: None

PATIENT
  Sex: Male

DRUGS (17)
  1. SORAFENIB 200MG BAYER [Suspect]
     Indication: RENAL CELL CARCINOMA
     Dosage: 800MG BID PO
     Route: 048
     Dates: start: 20080731
  2. ANALGESIC CREAM [Concomitant]
  3. BISACODYL [Concomitant]
  4. BUPROPION HCL [Concomitant]
  5. CLINDAMYCIN PHOSPHATE [Concomitant]
  6. CLONAZEPAM [Concomitant]
  7. DEXAMETHASONE 4MG TAB [Concomitant]
  8. DIPHENHYDRAMINE HCL [Concomitant]
  9. DOCUSATE NA / SENNOSIDES [Concomitant]
  10. FINASTERIDE [Concomitant]
  11. FLUOROURACIL [Concomitant]
  12. GABAPENTIN [Concomitant]
  13. HYDROCORTISONE [Concomitant]
  14. HYDROMORPHONE HCL [Concomitant]
  15. MEGESTROL ACETATE [Concomitant]
  16. NUTRITION SUPPL BOOST/VANILLA [Concomitant]
  17. NYSTATIN [Concomitant]

REACTIONS (2)
  - MASS [None]
  - PAIN [None]
